FAERS Safety Report 4672597-8 (Version None)
Quarter: 2005Q2

REPORT INFORMATION
  Report Type: 
  Country: None (occurrence: None)
  Receive Date: 20050524
  Receipt Date: 20050512
  Transmission Date: 20051028
  Serious: Yes (Hospitalization)
  Sender: FDA-Public Use
  Company Number: FR-GLAXOSMITHKLINE-B0380802A

PATIENT
  Age: 87 Year
  Sex: Female

DRUGS (6)
  1. DEROXAT [Suspect]
     Indication: DEPRESSION
     Dosage: 20MG PER DAY
     Route: 048
     Dates: end: 20050412
  2. KARDEGIC [Concomitant]
     Dosage: 75MG PER DAY
     Route: 048
  3. LEVOTHYROX [Concomitant]
     Dosage: 75MG PER DAY
     Route: 048
  4. STILNOX [Concomitant]
     Dosage: 10MG PER DAY
     Route: 048
     Dates: end: 20050412
  5. ENALAPRIL MALEATE [Concomitant]
     Indication: ESSENTIAL HYPERTENSION
     Dosage: 10MG PER DAY
     Route: 048
  6. NITROGLYCERIN [Concomitant]
     Dosage: 10MG PER DAY
     Route: 062

REACTIONS (10)
  - BLOOD CHLORIDE DECREASED [None]
  - BLOOD OSMOLARITY DECREASED [None]
  - DEHYDRATION [None]
  - DIARRHOEA [None]
  - FAILURE TO THRIVE [None]
  - HAEMODILUTION [None]
  - HYPOCALCAEMIA [None]
  - HYPONATRAEMIA [None]
  - NAUSEA [None]
  - VOMITING [None]
